FAERS Safety Report 15591678 (Version 1)
Quarter: 2018Q4

REPORT INFORMATION
  Report Type: Spontaneous
  Country: US (occurrence: US)
  Receive Date: 20181106
  Receipt Date: 20181106
  Transmission Date: 20190205
  Serious: Yes (Hospitalization)
  Sender: FDA-Public Use
  Company Number: US-JNJFOC-20181042765

PATIENT
  Age: 55 Year
  Sex: Female
  Weight: 90.72 kg

DRUGS (1)
  1. INVOKANA [Suspect]
     Active Substance: CANAGLIFLOZIN
     Indication: DIABETES MELLITUS
     Route: 048
     Dates: end: 201604

REACTIONS (9)
  - Fall [Unknown]
  - Acute kidney injury [Unknown]
  - Blood pressure abnormal [Unknown]
  - Loss of consciousness [Unknown]
  - Wound [Not Recovered/Not Resolved]
  - Enterococcal infection [Unknown]
  - Dehydration [Unknown]
  - Renal failure [Unknown]
  - Fluid retention [Unknown]

NARRATIVE: CASE EVENT DATE: 201604
